FAERS Safety Report 26204455 (Version 1)
Quarter: 2025Q4

REPORT INFORMATION
  Report Type: Spontaneous
  Country: CN (occurrence: CN)
  Receive Date: 20251226
  Receipt Date: 20251226
  Transmission Date: 20260117
  Serious: Yes (Other)
  Sender: AMGEN
  Company Number: CN-AMGEN-CHNSP2025243987

PATIENT

DRUGS (1)
  1. REPATHA [Suspect]
     Active Substance: EVOLOCUMAB
     Indication: Product used for unknown indication
     Dosage: UNK
     Route: 065

REACTIONS (27)
  - Peritoneal dialysis [Unknown]
  - Stent placement [Unknown]
  - Coronary arterial stent insertion [Unknown]
  - Coronary artery bypass [Unknown]
  - Vascular graft [Unknown]
  - Aortic valve replacement [Unknown]
  - Low density lipoprotein decreased [Unknown]
  - Low density lipoprotein abnormal [Unknown]
  - Blood cholesterol decreased [Unknown]
  - Low density lipoprotein increased [Unknown]
  - Injection site indentation [Unknown]
  - Rubber sensitivity [Unknown]
  - Injury associated with device [Unknown]
  - Neoplasm prostate [Unknown]
  - High density lipoprotein increased [Unknown]
  - Injection site scab [Unknown]
  - Injection site discolouration [Unknown]
  - High density lipoprotein decreased [Unknown]
  - Colour blindness [Unknown]
  - Blood cholesterol abnormal [Unknown]
  - Blood triglycerides abnormal [Unknown]
  - Lipids increased [Unknown]
  - Systolic hypertension [Unknown]
  - Lipids abnormal [Unknown]
  - Fear of injection [Unknown]
  - Injection site haemorrhage [Unknown]
  - Injection site bruising [Unknown]
